FAERS Safety Report 10057425 (Version 2)
Quarter: 2014Q2

REPORT INFORMATION
  Report Type: Spontaneous
  Country: JP (occurrence: JP)
  Receive Date: 20140403
  Receipt Date: 20140521
  Transmission Date: 20141212
  Serious: Yes (Other)
  Sender: FDA-Public Use
  Company Number: PHHY2014JP037901

PATIENT
  Age: 34 Year
  Sex: Female

DRUGS (7)
  1. SANDIMMUNE NEORAL [Suspect]
     Indication: CORD BLOOD TRANSPLANT THERAPY
     Dosage: 100 MG, DAILY
     Route: 048
     Dates: start: 2007, end: 2007
  2. PREDNISOLONE [Suspect]
     Indication: NON-HODGKIN^S LYMPHOMA
     Dosage: 7.5 MG/DAY
  3. PREDNISOLONE [Suspect]
     Indication: PANCYTOPENIA
  4. VINCRISTINE [Suspect]
     Indication: NON-HODGKIN^S LYMPHOMA
  5. METHOTREXATE [Suspect]
     Indication: NON-HODGKIN^S LYMPHOMA
     Dosage: 10 MG/M2, UNK
  6. METHOTREXATE [Suspect]
     Dosage: 7 MG/M2, UNK
  7. CYCLOPHOSPHAMIDE [Suspect]
     Indication: NON-HODGKIN^S LYMPHOMA
     Dosage: 60 MG/KG, UNK

REACTIONS (6)
  - Myelodysplastic syndrome [Unknown]
  - Takayasu^s arteritis [Recovering/Resolving]
  - Pancytopenia [Unknown]
  - Aplastic anaemia [Unknown]
  - Haematology test abnormal [Unknown]
  - Carotid arteriosclerosis [Unknown]
